FAERS Safety Report 5223610-0 (Version None)
Quarter: 2007Q1

REPORT INFORMATION
  Report Type: 
  Country: None (occurrence: None)
  Receive Date: 20070118
  Receipt Date: 20070105
  Transmission Date: 20070707
  Serious: No
  Sender: FDA-Public Use
  Company Number: WSDF_00600

PATIENT
  Age: 49 Year
  Sex: Male
  Weight: 80 kg

DRUGS (4)
  1. WINRHO SDF [Suspect]
     Indication: IDIOPATHIC THROMBOCYTOPENIC PURPURA
     Dosage: 50 UG/KG ONCE IV
     Route: 042
     Dates: start: 20061120, end: 20061120
  2. WINRHO SDF [Suspect]
     Indication: IDIOPATHIC THROMBOCYTOPENIC PURPURA
     Dates: start: 20061120, end: 20061120
  3. PREDNISOLONE [Concomitant]
  4. LANSOPRAZOLE [Concomitant]

REACTIONS (2)
  - HAEMOGLOBINURIA [None]
  - INTRAVASCULAR HAEMOLYSIS [None]
